FAERS Safety Report 5823285-3 (Version None)
Quarter: 2008Q3

REPORT INFORMATION
  Report Type: 
  Country: None (occurrence: None)
  Receive Date: 20080725
  Receipt Date: 20080716
  Transmission Date: 20090109
  Serious: Yes (Hospitalization)
  Sender: FDA-Public Use
  Company Number: JP-JNJFOC-20040504560

PATIENT
  Sex: Female
  Weight: 50 kg

DRUGS (9)
  1. REMICADE [Suspect]
     Dosage: 6TH DOSE
     Route: 041
     Dates: start: 20031111
  2. REMICADE [Suspect]
     Dosage: 5TH DOSE
     Route: 041
     Dates: start: 20031111
  3. REMICADE [Suspect]
     Dosage: 4TH DOSE
     Route: 041
     Dates: start: 20031111
  4. REMICADE [Suspect]
     Dosage: 3RD DOSE
     Route: 041
     Dates: start: 20031111
  5. REMICADE [Suspect]
     Dosage: 2ND DOSE
     Route: 041
     Dates: start: 20031111
  6. REMICADE [Suspect]
     Indication: CROHN'S DISEASE
     Dosage: 1ST DOSE
     Route: 041
     Dates: start: 20031111
  7. PENTASA [Concomitant]
     Indication: CROHN'S DISEASE
     Route: 048
  8. ELENTAL [Concomitant]
     Indication: CROHN'S DISEASE
  9. HYDROCORTONE [Concomitant]
     Indication: CROHN'S DISEASE
     Route: 042

REACTIONS (1)
  - PYREXIA [None]
